FAERS Safety Report 5161196-X (Version None)
Quarter: 2006Q4

REPORT INFORMATION
  Report Type: 
  Country: None (occurrence: None)
  Receive Date: 20061130
  Receipt Date: 20060814
  Transmission Date: 20070319
  Serious: No
  Sender: FDA-Public Use
  Company Number: US-BRISTOL-MYERS SQUIBB COMPANY-13473905

PATIENT
  Age: 57 Year
  Sex: Male
  Weight: 90 kg

DRUGS (4)
  1. ERBITUX [Suspect]
     Indication: COLON CANCER
     Route: 042
  2. CAMPTOSAR [Suspect]
     Indication: COLON CANCER
  3. BENADRYL [Concomitant]
     Indication: PREMEDICATION
  4. AMBIEN [Concomitant]

REACTIONS (2)
  - DERMATITIS ACNEIFORM [None]
  - PRURITUS [None]
